FAERS Safety Report 6346666-0 (Version None)
Quarter: 2009Q3

REPORT INFORMATION
  Report Type: 
  Country: None (occurrence: None)
  Receive Date: 20090904
  Receipt Date: 20090827
  Transmission Date: 20100115
  Serious: Yes (Disabling)
  Sender: FDA-Public Use
  Company Number: MESA-2009-010-FUP1

PATIENT
  Age: 40 Year
  Sex: Male

DRUGS (3)
  1. PENTASA [Suspect]
     Indication: COLITIS ULCERATIVE
  2. AZATHIOPRINE [Suspect]
     Indication: COLITIS ULCERATIVE
  3. CORTICOSTEROIDS [Suspect]
     Indication: COLITIS ULCERATIVE
     Dosage: 2 MG/KG/DAY;

REACTIONS (14)
  - ACUTE FEBRILE NEUTROPHILIC DERMATOSIS [None]
  - ARTHRALGIA [None]
  - BACK PAIN [None]
  - CARDIAC FAILURE [None]
  - HAEMODYNAMIC INSTABILITY [None]
  - HEPATIC FAILURE [None]
  - HYPERTHERMIA [None]
  - INFLAMMATION [None]
  - MULTI-ORGAN FAILURE [None]
  - MYALGIA [None]
  - RENAL FAILURE [None]
  - RESPIRATORY FAILURE [None]
  - SKIN OEDEMA [None]
  - WHITE BLOOD CELL COUNT INCREASED [None]
